FAERS Safety Report 4870979-2 (Version None)
Quarter: 2006Q1

REPORT INFORMATION
  Report Type: 
  Country: None (occurrence: None)
  Receive Date: 20060103
  Receipt Date: 20051229
  Transmission Date: 20060701
  Serious: Yes (Death)
  Sender: FDA-Public Use
  Company Number: 200515022EU

PATIENT
  Age: 52 Year
  Sex: Male

DRUGS (2)
  1. NICODERM [Suspect]
     Dosage: 21MG UNKNOWN
     Route: 062
  2. UNSPECIFIED THYROID MEDICATION [Concomitant]
     Indication: HYPERTHYROIDISM
     Route: 065

REACTIONS (5)
  - DRUG INEFFECTIVE [None]
  - HYPERTENSION [None]
  - HYPERTHYROIDISM [None]
  - MYOCARDIAL INFARCTION [None]
  - OVERDOSE [None]
